FAERS Safety Report 6955923-6 (Version None)
Quarter: 2010Q3

REPORT INFORMATION
  Report Type: 
  Country: None (occurrence: None)
  Receive Date: 20100826
  Receipt Date: 20100826
  Transmission Date: 20110219
  Serious: Yes (Other)
  Sender: FDA-Public Use
  Company Number: None

PATIENT
  Age: 77 Year
  Sex: Female
  Weight: 84.82 kg

DRUGS (9)
  1. FERAHEME [Suspect]
     Indication: ANAEMIA
     Dosage: UNKNOWN UNKNOWN  IV
     Route: 042
     Dates: start: 20100621, end: 20100621
  2. POTASSIUM [Concomitant]
  3. METOLAZONE [Concomitant]
  4. COUMADIN [Concomitant]
  5. LANTUS [Concomitant]
  6. CARDIZEM [Concomitant]
  7. LASIX [Concomitant]
  8. DIGOXIN [Concomitant]
  9. FOLIC ACID [Concomitant]

REACTIONS (3)
  - DRUG HYPERSENSITIVITY [None]
  - OXYGEN SATURATION DECREASED [None]
  - PYREXIA [None]
